FAERS Safety Report 8924092 (Version 2)
Quarter: 2013Q1

REPORT INFORMATION
  Report Type: Spontaneous
  Country: US (occurrence: US)
  Receive Date: 20121126
  Receipt Date: 20130220
  Transmission Date: 20140127
  Serious: Yes (Hospitalization)
  Sender: FDA-Public Use
  Company Number: US-B.I. PHARMACEUTICALS,INC./RIDGEFIELD-2012-BI-00994BP

PATIENT
  Age: 65 None
  Sex: Male
  Weight: 113.85 kg

DRUGS (10)
  1. SPIRIVA [Suspect]
     Indication: CHRONIC OBSTRUCTIVE PULMONARY DISEASE
     Dosage: 18 MCG
     Route: 055
     Dates: start: 20120423, end: 20120829
  2. LYRICA [Concomitant]
     Indication: BACK PAIN
     Dosage: 50 MG
     Route: 048
     Dates: start: 2010
  3. FOSINOPRIL [Concomitant]
     Indication: ESSENTIAL HYPERTENSION
     Dosage: 40 MG
     Route: 048
     Dates: start: 2009
  4. HYDROMORPHONE [Concomitant]
     Indication: PAIN
     Dosage: 4 MG
     Route: 048
     Dates: start: 2007
  5. VENLAFAXINE [Concomitant]
     Indication: DEPRESSION
     Dosage: 300 MG
     Route: 048
     Dates: start: 2007
  6. ATORVASTATIN [Concomitant]
     Indication: CORONARY ARTERY DISEASE
     Dosage: 20 MG
     Route: 048
     Dates: start: 2009
  7. PLAVIX [Concomitant]
     Indication: ANTICOAGULANT THERAPY
     Dosage: 75 MG
     Route: 048
     Dates: start: 2009
  8. XANAX [Concomitant]
     Indication: ANXIETY
     Route: 048
     Dates: start: 2002
  9. XANAX [Concomitant]
     Indication: DEPRESSION
  10. DEXTROAMPHETAMINE [Concomitant]
     Indication: NARCOLEPSY
     Dosage: 20 MG
     Dates: end: 20121112

REACTIONS (3)
  - Back disorder [Recovered/Resolved]
  - Visual impairment [Not Recovered/Not Resolved]
  - Vision blurred [Recovered/Resolved]
